FAERS Safety Report 4524510-1 (Version None)
Quarter: 2004Q4

REPORT INFORMATION
  Report Type: 
  Country: None (occurrence: None)
  Receive Date: 20041117
  Receipt Date: 20031219
  Transmission Date: 20050328
  Serious: Yes (Other)
  Sender: FDA-Public Use
  Company Number: US-JNJFOC-20031204826

PATIENT
  Age: 54 Year
  Sex: Female

DRUGS (3)
  1. LEVAQUIN [Suspect]
     Indication: DIVERTICULITIS
     Dosage: ORAL
     Route: 048
     Dates: start: 20020801
  2. FLAGYL [Concomitant]
  3. HRT (ANDROGENS AND FEMALE SEX HORMONES IN COMB) [Concomitant]

REACTIONS (2)
  - TENDON RUPTURE [None]
  - TENDONITIS [None]
